FAERS Safety Report 7043397-9 (Version None)
Quarter: 2010Q4

REPORT INFORMATION
  Report Type: 
  Country: None (occurrence: None)
  Receive Date: 20101013
  Receipt Date: 20101005
  Transmission Date: 20110411
  Serious: Yes (Hospitalization, Other)
  Sender: FDA-Public Use
  Company Number: US-BAYER-201019447BCC

PATIENT
  Age: 48 Year
  Sex: Male
  Weight: 85 kg

DRUGS (3)
  1. ALEVE [Suspect]
     Indication: HEADACHE
     Dosage: TOTAL DAILY DOSE: 440 MG  UNIT DOSE: 220 MG
     Route: 048
     Dates: start: 20100823
  2. LANTUS [Concomitant]
     Route: 065
  3. CELEXA [Concomitant]
     Route: 065

REACTIONS (7)
  - DYSPEPSIA [None]
  - ERYTHEMA [None]
  - EYE SWELLING [None]
  - PRURITUS [None]
  - SKIN BURNING SENSATION [None]
  - SWOLLEN TONGUE [None]
  - URTICARIA [None]
